FAERS Safety Report 9670093 (Version 1)
Quarter: 2013Q4

REPORT INFORMATION
  Report Type: Spontaneous
  Country: US (occurrence: US)
  Receive Date: 20131105
  Receipt Date: 20131105
  Transmission Date: 20140711
  Serious: No
  Sender: FDA-Public Use
  Company Number: US-ASTRAZENECA-2013SE56241

PATIENT
  Age: 73 Year
  Sex: Female
  Weight: 59 kg

DRUGS (8)
  1. CRESTOR [Suspect]
     Indication: BLOOD CHOLESTEROL INCREASED
     Dosage: DOSE UNKNOWN
     Route: 048
     Dates: start: 2002
  2. CRESTOR [Suspect]
     Indication: BLOOD CHOLESTEROL INCREASED
     Route: 048
     Dates: end: 201205
  3. RESTASIS [Concomitant]
     Indication: DRY EYE
     Dosage: 0.05 ONE DROP DAILY
     Route: 050
  4. LEVYTHYROXLINE [Concomitant]
     Indication: HYPOTHYROIDISM
  5. HYDROXYCHOROQUINE [Concomitant]
     Indication: ARTHRITIS
  6. TEMAZEPAM [Concomitant]
     Indication: SLEEP DISORDER
  7. ALPRAZOLAM [Concomitant]
     Indication: ANXIETY
  8. OXYBUTYNIN [Concomitant]
     Indication: BLADDER DISORDER
     Dosage: THREE 5 MG TABLETS DAILY

REACTIONS (6)
  - Renal cyst [Not Recovered/Not Resolved]
  - Dysstasia [Recovered/Resolved]
  - Muscle atrophy [Unknown]
  - Abasia [Unknown]
  - Depression [Not Recovered/Not Resolved]
  - Myalgia [Not Recovered/Not Resolved]
